FAERS Safety Report 23825209 (Version 4)
Quarter: 2024Q2

REPORT INFORMATION
  Report Type: Spontaneous
  Country: US (occurrence: US)
  Receive Date: 20240507
  Receipt Date: 20240621
  Transmission Date: 20240716
  Serious: No
  Sender: FDA-Public Use
  Company Number: US-PFIZER INC-202400098503

PATIENT
  Age: 61 Year
  Sex: Male

DRUGS (1)
  1. GENOTROPIN [Suspect]
     Active Substance: SOMATROPIN
     Dosage: 0.4 MG, DAILY

REACTIONS (4)
  - Poor quality device used [Unknown]
  - Device use error [Unknown]
  - Drug dose omission by device [Unknown]
  - Device malfunction [Unknown]
